FAERS Safety Report 8567201-2 (Version None)
Quarter: 2012Q3

REPORT INFORMATION
  Report Type: 
  Country: None (occurrence: None)
  Receive Date: 20120803
  Receipt Date: 20111121
  Transmission Date: 20120928
  Serious: No
  Sender: FDA-Public Use
  Company Number: US-ABBOTT-11P-163-0876064-00

PATIENT
  Sex: Male
  Weight: 106.69 kg

DRUGS (9)
  1. SYNTHROID [Concomitant]
     Indication: HYPOTHYROIDISM
  2. NIASPAN [Suspect]
     Indication: BLOOD CHOLESTEROL INCREASED
     Dates: start: 20111024, end: 20111106
  3. FENOFIBRATE [Concomitant]
     Indication: BLOOD CHOLESTEROL INCREASED
  4. NIASPAN [Suspect]
     Dates: start: 20111107
  5. METFORMIN HYDROCHLORIDE [Concomitant]
     Indication: DIABETES MELLITUS
  6. RAMIPRIL [Concomitant]
     Indication: HYPERTENSION
  7. PROZAC [Concomitant]
     Indication: DEPRESSION
  8. SIMVASTATIN [Concomitant]
     Indication: BLOOD CHOLESTEROL INCREASED
  9. TESTIM [Concomitant]
     Indication: BLOOD TESTOSTERONE DECREASED

REACTIONS (1)
  - FLUSHING [None]
